FAERS Safety Report 6723717-2 (Version None)
Quarter: 2010Q2

REPORT INFORMATION
  Report Type: 
  Country: None (occurrence: None)
  Receive Date: 20100513
  Receipt Date: 20100504
  Transmission Date: 20101027
  Serious: Yes (Hospitalization)
  Sender: FDA-Public Use
  Company Number: IT-WATSON-2010-06114

PATIENT
  Sex: Female

DRUGS (2)
  1. TRELSTAR DEPOT [Suspect]
     Indication: BREAST CANCER
     Dosage: 3.75 MG
     Route: 030
     Dates: start: 20090805
  2. TAMOXIFEN CITRATE [Suspect]
     Indication: BREAST CANCER
     Dosage: 20 MG
     Route: 048
     Dates: start: 20090805

REACTIONS (5)
  - ANXIETY [None]
  - APATHY [None]
  - ASTHENIA [None]
  - DEPRESSION [None]
  - INSOMNIA [None]
